FAERS Safety Report 5671741-3 (Version None)
Quarter: 2008Q1

REPORT INFORMATION
  Report Type: 
  Country: None (occurrence: None)
  Receive Date: 20080314
  Receipt Date: 20080306
  Transmission Date: 20080703
  Serious: Yes (Hospitalization)
  Sender: FDA-Public Use
  Company Number: 2008-00796

PATIENT
  Sex: Male
  Weight: 86.4 kg

DRUGS (2)
  1. VELCADE [Suspect]
     Indication: MANTLE CELL LYMPHOMA
     Dosage: 1.30 MG/M2,IV BOLUS
     Route: 040
     Dates: start: 20080215, end: 20080225
  2. REVLIMID [Suspect]
     Indication: MANTLE CELL LYMPHOMA
     Dosage: 20.00 MG,ORAL
     Route: 048
     Dates: start: 20080215, end: 20080227

REACTIONS (2)
  - CONSTIPATION [None]
  - ILEUS [None]
